FAERS Safety Report 15879887 (Version 1)
Quarter: 2019Q1

REPORT INFORMATION
  Report Type: Spontaneous
  Country: US (occurrence: US)
  Receive Date: 20190104
  Receipt Date: 20190104
  Transmission Date: 20190417
  Serious: Yes (Hospitalization)
  Sender: FDA-Public Use
  Company Number: None

PATIENT
  Age: 61 Year
  Sex: Male

DRUGS (25)
  1. TYLENOL [Concomitant]
     Active Substance: ACETAMINOPHEN
  2. FUROSEMIDE. [Concomitant]
     Active Substance: FUROSEMIDE
  3. SPIRONOLACTONE. [Concomitant]
     Active Substance: SPIRONOLACTONE
  4. NICODERM CQ [Concomitant]
     Active Substance: NICOTINE
  5. LEVOFLOXACIN. [Concomitant]
     Active Substance: LEVOFLOXACIN
  6. MORPHINE [Concomitant]
     Active Substance: MORPHINE
  7. VANCOMYCIN [Concomitant]
     Active Substance: VANCOMYCIN
  8. ASPIRIN. [Concomitant]
     Active Substance: ASPIRIN
  9. COREQ [Concomitant]
  10. FOLIC ACID. [Concomitant]
     Active Substance: FOLIC ACID
  11. VOSEVI [Suspect]
     Active Substance: SOFOSBUVIR\VELPATASVIR\VOXILAPREVIR
     Indication: HEPATITIS C
     Route: 048
     Dates: start: 20180425, end: 20180726
  12. ATORVASTATIN [Concomitant]
     Active Substance: ATORVASTATIN
  13. IRON SULFATE [Concomitant]
     Active Substance: FERROUS SULFATE ANHYDROUS
  14. OMEPRAZOLE. [Concomitant]
     Active Substance: OMEPRAZOLE
  15. MULTIVITAMIN [Concomitant]
     Active Substance: VITAMINS
  16. COLACE [Concomitant]
     Active Substance: DOCUSATE SODIUM
  17. ADVAIR HFA [Concomitant]
     Active Substance: FLUTICASONE PROPIONATE\SALMETEROL XINAFOATE
  18. LISINOPRIL. [Concomitant]
     Active Substance: LISINOPRIL
  19. TIAMINE [Concomitant]
  20. ALBUTEROL. [Concomitant]
     Active Substance: ALBUTEROL
  21. BUMEX [Concomitant]
     Active Substance: BUMETANIDE
  22. BUPRENOPHINE [Concomitant]
     Active Substance: BUPRENORPHINE
  23. METOPROLOL. [Concomitant]
     Active Substance: METOPROLOL
  24. VITAMIN C [Concomitant]
     Active Substance: ASCORBIC ACID
  25. OXYCODONE [Concomitant]
     Active Substance: OXYCODONE

REACTIONS (6)
  - Diverticulitis [None]
  - Staphylococcal infection [None]
  - Pain [None]
  - Clostridium difficile colitis [None]
  - Nausea [None]
  - Diarrhoea [None]

NARRATIVE: CASE EVENT DATE: 20180514
